FAERS Safety Report 16369579 (Version 2)
Quarter: 2019Q4

REPORT INFORMATION
  Report Type: Report from Study
  Country: None (occurrence: NL)
  Receive Date: 20190530
  Receipt Date: 20191101
  Transmission Date: 20200122
  Serious: Yes (Death, Life-Threatening)
  Sender: FDA-Public Use
  Company Number: NL-ABBVIE-19K-114-2801311-00

PATIENT
  Sex: Female

DRUGS (2)
  1. VENCLYXTO [Suspect]
     Active Substance: VENETOCLAX
     Indication: ACUTE MYELOID LEUKAEMIA
     Route: 048
     Dates: start: 20190218, end: 20190328
  2. DECITABINE. [Concomitant]
     Active Substance: DECITABINE
     Indication: ACUTE MYELOID LEUKAEMIA

REACTIONS (4)
  - Acute myeloid leukaemia [Fatal]
  - Infection [Fatal]
  - Off label use [Unknown]
  - Drug ineffective [Fatal]

NARRATIVE: CASE EVENT DATE: 2019
